FAERS Safety Report 19750516 (Version 1)
Quarter: 2021Q3

REPORT INFORMATION
  Report Type: Spontaneous
  Country: US (occurrence: US)
  Receive Date: 20210826
  Receipt Date: 20210826
  Transmission Date: 20211014
  Serious: Yes (Life-Threatening, Hospitalization)
  Sender: FDA-Public Use
  Company Number: US-MYLANLABS-2021M1055529

PATIENT
  Age: 2 Year
  Sex: Male

DRUGS (13)
  1. POTASSIUM [Concomitant]
     Active Substance: POTASSIUM
     Indication: VENTRICULAR TACHYARRHYTHMIA
     Dosage: UNK
     Route: 065
  2. SODIUM BICARBONATE. [Concomitant]
     Active Substance: SODIUM BICARBONATE
     Indication: VENTRICULAR TACHYARRHYTHMIA
     Dosage: 0.5 MEQ/KG
     Route: 040
  3. MAGNESIUM SULFATE. [Concomitant]
     Active Substance: MAGNESIUM SULFATE
     Indication: VENTRICULAR TACHYARRHYTHMIA
     Dosage: UNK
     Route: 065
  4. LIDOCAINE. [Suspect]
     Active Substance: LIDOCAINE
     Indication: VENTRICULAR TACHYARRHYTHMIA
     Dosage: 1 MILLIGRAM/KILOGRAM (BOLUS)
     Route: 065
  5. FAT EMULSION NOS [Concomitant]
     Active Substance: EGG PHOSPHOLIPIDS\SAFFLOWER OIL\SOYBEAN OIL
     Indication: CIRCULATORY COLLAPSE
     Dosage: 0.25 ML/KG, QMINUTE
     Route: 040
  6. LIDOCAINE. [Suspect]
     Active Substance: LIDOCAINE
     Indication: CIRCULATORY COLLAPSE
  7. CALCIUM [Concomitant]
     Active Substance: CALCIUM
     Indication: CIRCULATORY COLLAPSE
  8. SODIUM CHLORIDE. [Suspect]
     Active Substance: SODIUM CHLORIDE
     Indication: CIRCULATORY COLLAPSE
     Dosage: 1 MEQ/KG
     Route: 065
  9. SODIUM BICARBONATE. [Concomitant]
     Active Substance: SODIUM BICARBONATE
     Indication: CIRCULATORY COLLAPSE
     Dosage: 1?2 MEQ/KG
     Route: 040
  10. FAT EMULSION NOS [Concomitant]
     Active Substance: EGG PHOSPHOLIPIDS\SAFFLOWER OIL\SOYBEAN OIL
     Indication: VENTRICULAR TACHYARRHYTHMIA
     Dosage: 1.5 ML/KG
     Route: 040
  11. CALCIUM [Concomitant]
     Active Substance: CALCIUM
     Indication: VENTRICULAR TACHYARRHYTHMIA
     Dosage: UNK
     Route: 065
  12. MAGNESIUM SULFATE. [Concomitant]
     Active Substance: MAGNESIUM SULFATE
     Indication: CIRCULATORY COLLAPSE
  13. POTASSIUM [Concomitant]
     Active Substance: POTASSIUM
     Indication: CIRCULATORY COLLAPSE

REACTIONS (1)
  - Drug ineffective [Unknown]
